FAERS Safety Report 15434551 (Version 1)
Quarter: 2018Q3

REPORT INFORMATION
  Report Type: Spontaneous
  Country: JP (occurrence: JP)
  Receive Date: 20180927
  Receipt Date: 20180927
  Transmission Date: 20181010
  Serious: Yes (Other)
  Sender: FDA-Public Use
  Company Number: JP-JNJFOC-20180928148

PATIENT

DRUGS (1)
  1. SIMPONI [Suspect]
     Active Substance: GOLIMUMAB
     Indication: RHEUMATOID ARTHRITIS
     Route: 058

REACTIONS (8)
  - Upper respiratory tract inflammation [Unknown]
  - Gastroenteritis [Unknown]
  - Gingivitis [Unknown]
  - Herpes zoster [Unknown]
  - Respiratory tract inflammation [Unknown]
  - Hypersensitivity [Unknown]
  - Cellulitis [Unknown]
  - Influenza [Unknown]
